FAERS Safety Report 9611965 (Version 3)
Quarter: 2013Q4

REPORT INFORMATION
  Report Type: Spontaneous
  Country: US (occurrence: US)
  Receive Date: 20131010
  Receipt Date: 20131108
  Transmission Date: 20140711
  Serious: Yes (Other)
  Sender: FDA-Public Use
  Company Number: US-009507513-1310USA002656

PATIENT
  Age: 45 Year
  Sex: Female
  Weight: 79.36 kg

DRUGS (1)
  1. IMPLANON [Suspect]
     Dosage: SECOND IMPLANON
     Route: 059
     Dates: start: 201008, end: 20131025

REACTIONS (7)
  - Surgery [Unknown]
  - Device deployment issue [Recovered/Resolved]
  - Weight increased [Not Recovered/Not Resolved]
  - Medical device complication [Recovered/Resolved]
  - Medical device complication [Recovered/Resolved]
  - Medical device complication [Recovered/Resolved]
  - Incorrect drug administration duration [Recovered/Resolved]
